FAERS Safety Report 23735008 (Version 3)
Quarter: 2024Q2

REPORT INFORMATION
  Report Type: Spontaneous
  Country: US (occurrence: US)
  Receive Date: 20240412
  Receipt Date: 20240517
  Transmission Date: 20240716
  Serious: No
  Sender: FDA-Public Use
  Company Number: US-AMGEN-USASP2024071607

PATIENT
  Age: 54 Year
  Sex: Female

DRUGS (1)
  1. TAVNEOS [Suspect]
     Active Substance: AVACOPAN
     Indication: Product used for unknown indication
     Dosage: 30 MILLIGRAM, BID (TWICE DAILY WITH FOOD)
     Route: 048
     Dates: start: 202403, end: 2024

REACTIONS (2)
  - Dysphagia [Unknown]
  - Product administration error [Unknown]

NARRATIVE: CASE EVENT DATE: 20240101
